FAERS Safety Report 12780684 (Version 10)
Quarter: 2022Q1

REPORT INFORMATION
  Report Type: Spontaneous
  Country: US (occurrence: US)
  Receive Date: 20160926
  Receipt Date: 20220204
  Transmission Date: 20220424
  Serious: Yes (Hospitalization, Other)
  Sender: FDA-Public Use
  Company Number: US-PFIZER INC-2016447006

PATIENT
  Age: 74 Year
  Sex: Female
  Weight: 66 kg

DRUGS (11)
  1. IBRANCE [Suspect]
     Active Substance: PALBOCICLIB
     Indication: Breast cancer metastatic
     Dosage: 75 MG, CYCLIC (ONCE A DAY FOR 21 DAYS, AND THEN STOPS FOR 7)
     Route: 048
     Dates: start: 201608, end: 2016
  2. IBRANCE [Suspect]
     Active Substance: PALBOCICLIB
     Indication: Metastases to bone
     Dosage: UNK, 1X/DAY
     Route: 048
     Dates: start: 20160910, end: 2016
  3. IBRANCE [Suspect]
     Active Substance: PALBOCICLIB
     Dosage: 75 MG, CYCLIC
     Route: 048
     Dates: start: 201611
  4. IBRANCE [Suspect]
     Active Substance: PALBOCICLIB
     Dosage: 75 MG, 1X/DAY
     Route: 048
     Dates: start: 201708
  5. IBRANCE [Suspect]
     Active Substance: PALBOCICLIB
     Dosage: 75 MG, CYCLIC (ONCE A DAY FOR THREE WEEKS)
  6. LETROZOLE [Concomitant]
     Active Substance: LETROZOLE
     Indication: Blood oestrogen abnormal
     Dosage: 2.5 MG, 1X/DAY
     Route: 048
  7. LETROZOLE [Concomitant]
     Active Substance: LETROZOLE
     Indication: Hormone suppression therapy
  8. ASPIRIN [Concomitant]
     Active Substance: ASPIRIN
     Indication: Anticoagulant therapy
     Dosage: 325 MG, 1X/DAY
     Route: 048
  9. LOVASTATIN [Concomitant]
     Active Substance: LOVASTATIN
     Indication: Blood cholesterol increased
     Dosage: 20 MG, 1X/DAY
     Route: 048
  10. CALCIUM\VITAMIN D [Concomitant]
     Active Substance: CALCIUM\VITAMIN D
     Indication: Bone disorder
     Dosage: 1 DF, 2X/DAY
  11. XARELTO [Concomitant]
     Active Substance: RIVAROXABAN
     Indication: Anticoagulant therapy
     Dosage: 20 MG, 1X/DAY (20 MG, ONCE EVERY DAY)

REACTIONS (4)
  - Cervical vertebral fracture [Not Recovered/Not Resolved]
  - White blood cell count decreased [Recovered/Resolved]
  - Road traffic accident [Not Recovered/Not Resolved]
  - Body height decreased [Recovered/Resolved]

NARRATIVE: CASE EVENT DATE: 20160919
